FAERS Safety Report 21821178 (Version 2)
Quarter: 2023Q1

REPORT INFORMATION
  Report Type: Spontaneous
  Country: AR (occurrence: AR)
  Receive Date: 20230105
  Receipt Date: 20230320
  Transmission Date: 20230417
  Serious: Yes (Other)
  Sender: FDA-Public Use
  Company Number: AR-AUROBINDO-AUR-APL-2022-053088

PATIENT
  Age: 64 Year
  Sex: Female

DRUGS (1)
  1. BELINOSTAT [Suspect]
     Active Substance: BELINOSTAT
     Indication: Peripheral T-cell lymphoma unspecified
     Dosage: 1000 MG/M2
     Route: 042
     Dates: start: 20221102, end: 20221104

REACTIONS (5)
  - Disease progression [Unknown]
  - Platelet count decreased [Not Recovered/Not Resolved]
  - Vomiting [Recovered/Resolved]
  - Fatigue [Unknown]
  - Epistaxis [Unknown]
